FAERS Safety Report 21889616 (Version 4)
Quarter: 2023Q2

REPORT INFORMATION
  Report Type: Report from Study
  Country: US (occurrence: US)
  Receive Date: 20230120
  Receipt Date: 20230524
  Transmission Date: 20230722
  Serious: Yes (Hospitalization, Other)
  Sender: FDA-Public Use
  Company Number: US-TAKEDA-2023TUS003594

PATIENT
  Sex: Female
  Weight: 127 kg

DRUGS (35)
  1. MARIBAVIR [Suspect]
     Active Substance: MARIBAVIR
     Indication: Cytomegalovirus infection
     Dosage: 400 MILLIGRAM, BID
     Route: 048
     Dates: start: 20230110
  2. MARIBAVIR [Suspect]
     Active Substance: MARIBAVIR
     Indication: Post procedural infection
  3. TYLENOL [Concomitant]
     Active Substance: ACETAMINOPHEN
     Dosage: 650 MILLIGRAM, Q4HR
     Route: 048
  4. MEPRON [Concomitant]
     Active Substance: ATOVAQUONE
     Dosage: 1500 MILLIGRAM, QD
     Route: 048
     Dates: start: 20230109
  5. BENADRYL [Concomitant]
     Active Substance: DIPHENHYDRAMINE HYDROCHLORIDE
     Dosage: 25 MILLIGRAM, Q6HR
     Route: 048
     Dates: start: 20230109
  6. COLACE [Concomitant]
     Active Substance: DOCUSATE SODIUM
     Dosage: 100 MILLIGRAM, QD
     Route: 048
  7. VASOTEC [Concomitant]
     Active Substance: ENALAPRIL MALEATE
     Dosage: 1.25 MILLIGRAM, Q6HR
     Route: 042
  8. DIFICID [Concomitant]
     Active Substance: FIDAXOMICIN
     Dosage: 200 MILLIGRAM, Q12H
     Route: 048
     Dates: start: 20230109
  9. APRESOLINE HYDROCHLORIDE [Concomitant]
     Active Substance: HYDRALAZINE HYDROCHLORIDE
     Dosage: 10 MILLIGRAM, Q6HR
     Route: 042
  10. LIDOCAINE [Concomitant]
     Active Substance: LIDOCAINE
     Dosage: UNK UNK, 4/WEEK
     Route: 061
  11. ATIVAN [Concomitant]
     Active Substance: LORAZEPAM
     Dosage: 0.5 MILLIGRAM, Q6HR
     Route: 048
  12. ATIVAN [Concomitant]
     Active Substance: LORAZEPAM
     Dosage: 0.5 MILLIGRAM, Q6HR
     Route: 042
  13. ATIVAN [Concomitant]
     Active Substance: LORAZEPAM
     Dosage: 0.5 MILLIGRAM, Q6HR
     Route: 030
  14. MAGNESIUM OXIDE [Concomitant]
     Active Substance: MAGNESIUM OXIDE
     Dosage: 400 MILLIGRAM, Q12H
     Route: 048
  15. MAGNESIUM SULFATE [Concomitant]
     Active Substance: MAGNESIUM SULFATE
     Dosage: 2 GRAM, Q6HR
     Route: 042
     Dates: start: 20230102
  16. MAGNESIUM SULFATE [Concomitant]
     Active Substance: MAGNESIUM SULFATE
     Dosage: 2 GRAM, QD
     Route: 042
     Dates: start: 20230108
  17. MAGNESIUM SULFATE [Concomitant]
     Active Substance: MAGNESIUM SULFATE
     Dosage: 4 GRAM, Q8HR
     Route: 042
  18. ONDANSETRON [Concomitant]
     Active Substance: ONDANSETRON
     Dosage: 4 MILLIGRAM, Q6HR
     Route: 048
     Dates: start: 20230109
  19. ROXICODONE [Concomitant]
     Active Substance: OXYCODONE HYDROCHLORIDE
     Dosage: 5 MILLIGRAM, Q4HR
     Route: 048
  20. PROTONIX [Concomitant]
     Active Substance: PANTOPRAZOLE SODIUM
     Dosage: 40 MILLIGRAM, QD
     Route: 048
     Dates: start: 20230109
  21. NOXAFIL [Concomitant]
     Active Substance: POSACONAZOLE
     Dosage: 300 MILLIGRAM, QD
     Route: 048
     Dates: start: 20230109
  22. Potassium phosphate dibasic;Potassium phosphate monobasic;Sodium phosp [Concomitant]
     Dosage: 1 DOSAGE FORM, Q4HR
     Route: 048
     Dates: start: 20230109
  23. POTASSIUM BICARBONATE [Concomitant]
     Active Substance: POTASSIUM BICARBONATE
     Dosage: 20 MILLIEQUIVALENT, Q1HR
     Route: 048
     Dates: start: 20221229
  24. POTASSIUM CHLORIDE [Concomitant]
     Active Substance: POTASSIUM CHLORIDE
     Dosage: 20 MILLIEQUIVALENT, Q2HR
     Route: 042
     Dates: start: 20230108
  25. COMPAZINE [Concomitant]
     Active Substance: PROCHLORPERAZINE MALEATE
     Dosage: 10 MILLIGRAM, Q6HR
     Route: 048
  26. COMPAZINE [Concomitant]
     Active Substance: PROCHLORPERAZINE MALEATE
     Dosage: 10 MILLIGRAM, Q6HR
     Route: 042
  27. SODIUM CHLORIDE [Concomitant]
     Active Substance: SODIUM CHLORIDE
     Dosage: 500 MILLILITER, QD
     Route: 042
     Dates: start: 20230109
  28. SODIUM PHOSPHATE [Concomitant]
     Active Substance: SODIUM PHOSPHATE
     Dosage: 15 MILLIMOLE, Q8HR
     Route: 042
  29. SODIUM PHOSPHATE [Concomitant]
     Active Substance: SODIUM PHOSPHATE
     Dosage: 30 MILLIMOLE, Q12H
     Route: 042
  30. TACROLIMUS [Concomitant]
     Active Substance: TACROLIMUS
     Dosage: 1 MILLIGRAM, QD
     Route: 048
     Dates: start: 20230110
  31. TACROLIMUS [Concomitant]
     Active Substance: TACROLIMUS
     Dosage: 1.5 MILLIGRAM, QD
     Route: 048
     Dates: start: 20230110
  32. URSODIOL [Concomitant]
     Active Substance: URSODIOL
     Dosage: 300 MILLIGRAM, BID
     Route: 048
     Dates: start: 20230109
  33. GLYCERIN [Concomitant]
     Active Substance: GLYCERIN
     Dosage: UNK UNK, QD
     Route: 061
  34. ZINC OXIDE [Concomitant]
     Active Substance: ZINC OXIDE
     Dosage: UNK
     Route: 061
  35. ZOLPIDEM [Concomitant]
     Active Substance: ZOLPIDEM TARTRATE
     Dosage: 5 MILLIGRAM
     Route: 048

REACTIONS (8)
  - Pancytopenia [Unknown]
  - BK virus infection [Unknown]
  - Clostridium difficile infection [Unknown]
  - Nephritis [Unknown]
  - Cytomegalovirus infection [Unknown]
  - Acute kidney injury [Unknown]
  - Product distribution issue [Unknown]
  - Product dose omission issue [Unknown]
